FAERS Safety Report 23271796 (Version 2)
Quarter: 2024Q1

REPORT INFORMATION
  Report Type: Spontaneous
  Country: CA (occurrence: CA)
  Receive Date: 20231207
  Receipt Date: 20240104
  Transmission Date: 20240410
  Serious: Yes (Other)
  Sender: FDA-Public Use
  Company Number: CA-PFIZER INC-202300427501

PATIENT
  Age: 15 Year
  Sex: Female

DRUGS (1)
  1. METHOTREXATE SODIUM [Suspect]
     Active Substance: METHOTREXATE SODIUM
     Dosage: UNK

REACTIONS (5)
  - Uveitis [Unknown]
  - Polyarthritis [Unknown]
  - Synovitis [Unknown]
  - Drug intolerance [Not Recovered/Not Resolved]
  - Impaired quality of life [Unknown]
